FAERS Safety Report 4852952-3 (Version None)
Quarter: 2005Q4

REPORT INFORMATION
  Report Type: 
  Country: None (occurrence: None)
  Receive Date: 20051212
  Receipt Date: 20051117
  Transmission Date: 20060501
  Serious: Yes (Life-Threatening, Hospitalization)
  Sender: FDA-Public Use
  Company Number: US200511001749

PATIENT
  Age: 65 Year
  Sex: Female

DRUGS (6)
  1. FORTEO [Suspect]
     Indication: OSTEOPOROSIS
     Dates: start: 20031116
  2. FORTEO PEN (250MCG/ML) (FORTEO PEN 250MCG/ML (3ML) [Concomitant]
  3. ... [Concomitant]
  4. HYZAAR [Concomitant]
  5. NAPROXEN [Concomitant]
  6. CITALOPRAM (CITALOPRAM) [Concomitant]

REACTIONS (3)
  - GASTRIC ULCER HAEMORRHAGE [None]
  - GASTRIC ULCER PERFORATION [None]
  - PHARMACEUTICAL PRODUCT COMPLAINT [None]
